FAERS Safety Report 10998050 (Version 2)
Quarter: 2015Q2

REPORT INFORMATION
  Report Type: Report from Study
  Country: CA (occurrence: CA)
  Receive Date: 20150408
  Receipt Date: 20150527
  Transmission Date: 20150821
  Serious: Yes (Other)
  Sender: FDA-Public Use
  Company Number: CA-JNJFOC-20150400975

PATIENT
  Age: 60 Year
  Sex: Male
  Weight: 59.8 kg

DRUGS (3)
  1. PREDNISONE. [Concomitant]
     Active Substance: PREDNISONE
     Route: 048
  2. REMICADE [Suspect]
     Active Substance: INFLIXIMAB
     Indication: CROHN^S DISEASE
     Dosage: INDUCTION
     Route: 042
     Dates: start: 20150306
  3. HCTZ [Concomitant]
     Active Substance: HYDROCHLOROTHIAZIDE
     Route: 065

REACTIONS (4)
  - Abscess intestinal [Unknown]
  - Purulent discharge [Unknown]
  - Fistula [Unknown]
  - Intestinal operation [Unknown]

NARRATIVE: CASE EVENT DATE: 20150327
